FAERS Safety Report 17211501 (Version 1)
Quarter: 2019Q4

REPORT INFORMATION
  Report Type: Spontaneous
  Country: US (occurrence: US)
  Receive Date: 20191229
  Receipt Date: 20191229
  Transmission Date: 20200122
  Serious: No
  Sender: FDA-Public Use
  Company Number: US-TARO-2019TAR00782

PATIENT
  Age: 52 Year
  Sex: Female
  Weight: 58.05 kg

DRUGS (2)
  1. METRONIDAZOLE GEL USP, 1% [Suspect]
     Active Substance: METRONIDAZOLE
     Indication: ERYTHEMA
     Dosage: UNK UNK, 1X/DAY
     Route: 061
     Dates: start: 20191112, end: 20191112
  2. METRONIDAZOLE GEL USP, 1% [Suspect]
     Active Substance: METRONIDAZOLE
     Indication: PAPULE

REACTIONS (7)
  - Hypersensitivity [Not Recovered/Not Resolved]
  - Erythema [Not Recovered/Not Resolved]
  - Skin tightness [Not Recovered/Not Resolved]
  - Application site dryness [Not Recovered/Not Resolved]
  - Papule [Not Recovered/Not Resolved]
  - Drug ineffective [Recovered/Resolved]
  - Application site pruritus [Not Recovered/Not Resolved]

NARRATIVE: CASE EVENT DATE: 20191112
